FAERS Safety Report 6825022-2 (Version None)
Quarter: 2010Q3

REPORT INFORMATION
  Report Type: 
  Country: None (occurrence: None)
  Receive Date: 20100708
  Receipt Date: 20061121
  Transmission Date: 20110219
  Serious: No
  Sender: FDA-Public Use
  Company Number: US-PFIZER INC-2006147678

PATIENT
  Sex: Female
  Weight: 68.95 kg

DRUGS (5)
  1. CHANTIX [Suspect]
     Indication: SMOKING CESSATION THERAPY
     Dosage: BID:EVERY DAY
     Dates: start: 20061111
  2. MEGACE [Concomitant]
     Indication: UTERINE CANCER
  3. ACCOLATE [Concomitant]
     Indication: ASTHMA
  4. ALLEGRA [Concomitant]
     Indication: HYPERSENSITIVITY
  5. NEXIUM [Concomitant]
     Indication: DYSPEPSIA

REACTIONS (2)
  - NAUSEA [None]
  - VOMITING [None]
